FAERS Safety Report 8201348-5 (Version None)
Quarter: 2012Q1

REPORT INFORMATION
  Report Type: 
  Country: None (occurrence: None)
  Receive Date: 20120312
  Receipt Date: 20120307
  Transmission Date: 20120608
  Serious: Yes (Disabling)
  Sender: FDA-Public Use
  Company Number: US-PFIZER INC-2012061485

PATIENT
  Sex: Female
  Weight: 113.37 kg

DRUGS (6)
  1. CELEBREX [Suspect]
     Indication: ANTIINFLAMMATORY THERAPY
  2. SIMVASTATIN [Concomitant]
     Dosage: UNK
  3. CELEBREX [Suspect]
     Indication: MUSCULOSKELETAL DISCOMFORT
     Dosage: 200 MG, 1X/DAY
     Route: 048
     Dates: start: 20090101
  4. CELEBREX [Suspect]
     Indication: BACK DISORDER
  5. SINGULAIR [Concomitant]
     Dosage: UNK
  6. HYDROCHLOROTHIAZIDE [Concomitant]
     Dosage: UNK

REACTIONS (2)
  - ROTATOR CUFF SYNDROME [None]
  - ILL-DEFINED DISORDER [None]
